FAERS Safety Report 14029281 (Version 1)
Quarter: 2017Q3

REPORT INFORMATION
  Report Type: Spontaneous
  Country: US (occurrence: US)
  Receive Date: 20170930
  Receipt Date: 20170930
  Transmission Date: 20171128
  Serious: Yes (Other)
  Sender: FDA-Public Use
  Company Number: US-SA-2017SA087745

PATIENT
  Age: 39 Year
  Sex: Female

DRUGS (17)
  1. METRONIDAZOLE. [Concomitant]
     Active Substance: METRONIDAZOLE
  2. AMOXICILLIN/CLAVULANIC ACID [Concomitant]
  3. CITALOPRAM [Concomitant]
     Active Substance: CITALOPRAM HYDROBROMIDE
  4. DIAZEPAM. [Concomitant]
     Active Substance: DIAZEPAM
  5. TRAMADOL HYDROCHLORIDE. [Concomitant]
     Active Substance: TRAMADOL HYDROCHLORIDE
  6. MICONAZOLE. [Concomitant]
     Active Substance: MICONAZOLE
  7. GABAPENTIN. [Concomitant]
     Active Substance: GABAPENTIN
  8. LEVOFLOXACIN. [Concomitant]
     Active Substance: LEVOFLOXACIN
  9. LOVASTATIN. [Concomitant]
     Active Substance: LOVASTATIN
  10. TRETINOIN/LIPOSOMAL TRETINOIN [Concomitant]
  11. METHYLPREDNISOLONE. [Concomitant]
     Active Substance: METHYLPREDNISOLONE
  12. CIPROFLOXACIN. [Concomitant]
     Active Substance: CIPROFLOXACIN
  13. FLUTICASONE. [Concomitant]
     Active Substance: FLUTICASONE
  14. PREDNISONE. [Concomitant]
     Active Substance: PREDNISONE
  15. NASAL SALINE [Concomitant]
     Active Substance: SODIUM CHLORIDE
     Dosage: SPRAY
  16. AUBAGIO [Suspect]
     Active Substance: TERIFLUNOMIDE
     Indication: MULTIPLE SCLEROSIS
     Route: 048
     Dates: start: 20170418
  17. OXYBUTYNIN [Concomitant]
     Active Substance: OXYBUTYNIN

REACTIONS (1)
  - Multiple sclerosis relapse [Not Recovered/Not Resolved]

NARRATIVE: CASE EVENT DATE: 20170507
